FAERS Safety Report 5848343-9 (Version None)
Quarter: 2008Q3

REPORT INFORMATION
  Report Type: 
  Country: None (occurrence: None)
  Receive Date: 20080818
  Receipt Date: 20080624
  Transmission Date: 20090109
  Serious: No
  Sender: FDA-Public Use
  Company Number: US-BAYER-200827093NA

PATIENT
  Age: 40 Year
  Sex: Male
  Weight: 188 kg

DRUGS (5)
  1. ULTRAVIST 370 [Suspect]
     Indication: COMPUTERISED TOMOGRAM ABDOMEN
     Dosage: TOTAL DAILY DOSE: 149 ML  UNIT DOSE: 500 ML
     Route: 042
     Dates: start: 20080624, end: 20080624
  2. GLUBRIDE [Concomitant]
  3. ACTOS [Concomitant]
  4. ADVAIR DISKUS 100/50 [Concomitant]
  5. LISINOPRIL [Concomitant]

REACTIONS (2)
  - ERYTHEMA OF EYELID [None]
  - EYELIDS PRURITUS [None]
